FAERS Safety Report 17504472 (Version 1)
Quarter: 2020Q1

REPORT INFORMATION
  Report Type: Spontaneous
  Country: FR (occurrence: FR)
  Receive Date: 20200305
  Receipt Date: 20200305
  Transmission Date: 20200409
  Serious: Yes (Disabling, Congenital Anomaly, Other)
  Sender: FDA-Public Use
  Company Number: FR-MYLANLABS-2020M1023408

PATIENT
  Sex: Female

DRUGS (1)
  1. VALPROIC ACID. [Suspect]
     Active Substance: VALPROIC ACID
     Indication: PRODUCT USED FOR UNKNOWN INDICATION
     Dosage: UNK
     Route: 064

REACTIONS (9)
  - Bone pain [Not Recovered/Not Resolved]
  - Toe walking [Not Recovered/Not Resolved]
  - Social avoidant behaviour [Not Recovered/Not Resolved]
  - Foot deformity [Not Recovered/Not Resolved]
  - Congenital foot malformation [Not Recovered/Not Resolved]
  - Posture abnormal [Not Recovered/Not Resolved]
  - Congenital hand malformation [Unknown]
  - Spinal deformity [Not Recovered/Not Resolved]
  - Foetal exposure during pregnancy [Recovered/Resolved]
